FAERS Safety Report 19486472 (Version 30)
Quarter: 2024Q2

REPORT INFORMATION
  Report Type: Spontaneous
  Country: GB (occurrence: GB)
  Receive Date: 20210702
  Receipt Date: 20240604
  Transmission Date: 20240716
  Serious: Yes (Other)
  Sender: FDA-Public Use
  Company Number: None

PATIENT
  Age: 29 Year
  Sex: Male

DRUGS (39)
  1. AMITRIPTYLINE [Suspect]
     Active Substance: AMITRIPTYLINE
     Indication: Product used for unknown indication
  2. TOPIRAMATE [Suspect]
     Active Substance: TOPIRAMATE
     Indication: Product used for unknown indication
     Dosage: UNK
     Route: 048
  3. SERTRALINE [Suspect]
     Active Substance: SERTRALINE HYDROCHLORIDE
     Indication: Product used for unknown indication
     Dosage: UNK
  4. PREGABALIN [Suspect]
     Active Substance: PREGABALIN
     Indication: Product used for unknown indication
     Dosage: UNK
     Route: 048
  5. ACETAMINOPHEN [Suspect]
     Active Substance: ACETAMINOPHEN
     Indication: Product used for unknown indication
     Dosage: UNK
     Route: 048
  6. IBUPROFEN [Suspect]
     Active Substance: IBUPROFEN
     Indication: Product used for unknown indication
     Dosage: ORAL LIQUID
  7. THIAMINE [Suspect]
     Active Substance: THIAMINE
     Indication: Product used for unknown indication
  8. TRAZODONE HYDROCHLORIDE [Suspect]
     Active Substance: TRAZODONE HYDROCHLORIDE
     Indication: Product used for unknown indication
  9. CYANOCOBALAMIN [Suspect]
     Active Substance: CYANOCOBALAMIN
     Indication: Product used for unknown indication
     Dosage: UNK
  10. VALPROATE [Suspect]
     Active Substance: VALPROIC ACID
     Indication: Product used for unknown indication
     Dosage: UNK
     Route: 030
  11. BOTULINUM TOXIN NOS [Suspect]
     Active Substance: BOTULINUM TOXIN NOS
     Indication: Product used for unknown indication
     Dosage: SINGLE
     Route: 030
     Dates: start: 2017, end: 2018
  12. IBUPROFEN [Suspect]
     Active Substance: IBUPROFEN
     Indication: Product used for unknown indication
     Dosage: ENDOTRACHEOPULMONARY INSTILLATION, , POWDER AND SOLVENT FOR SOLUTION
  13. PROTHIADEN [Suspect]
     Active Substance: DOTHIEPIN HYDROCHLORIDE
     Indication: Product used for unknown indication
     Dosage: ENDOTRACHEOPULMONARY INSTILLATION, POWDER AND SOLVENT FOR SOLUTION
  14. PYRIDOXINE HYDROCHLORIDE\THIAMINE HYDROCHLORIDE [Suspect]
     Active Substance: PYRIDOXINE HYDROCHLORIDE\THIAMINE HYDROCHLORIDE
     Indication: Product used for unknown indication
  15. CYANOCOBALAMIN\DICLOFENAC SODIUM\PYRIDOXINE HYDROCHLORIDE\THIAMINE MON [Suspect]
     Active Substance: CYANOCOBALAMIN\DICLOFENAC SODIUM\PYRIDOXINE HYDROCHLORIDE\THIAMINE MONONITRATE
     Indication: Product used for unknown indication
  16. DICLOFENAC SODIUM [Suspect]
     Active Substance: DICLOFENAC\DICLOFENAC SODIUM
     Indication: Product used for unknown indication
  17. DOTHIEPIN [Suspect]
     Active Substance: DOTHIEPIN\DOTHIEPIN HYDROCHLORIDE
     Indication: Product used for unknown indication
  18. PYRIDOXINE HYDROCHLORIDE [Suspect]
     Active Substance: PYRIDOXINE HYDROCHLORIDE
     Indication: Product used for unknown indication
  19. DOSULEPIN HYDROCHLORIDE [Suspect]
     Active Substance: DOTHIEPIN HYDROCHLORIDE
     Indication: Product used for unknown indication
  20. VITAMIN B [Suspect]
     Active Substance: VITAMIN B
     Indication: Product used for unknown indication
  21. TOPAMAX [Suspect]
     Active Substance: TOPIRAMATE
     Indication: Product used for unknown indication
     Route: 048
  22. VITAMIN B COMPLEX [Suspect]
     Active Substance: CYANOCOBALAMIN\DEXPANTHENOL\NIACINAMIDE\PYRIDOXINE HYDROCHLORIDE\RIBOFLAVIN 5^-PHOSPHATE SODIUM\THIA
     Indication: Product used for unknown indication
     Dosage: UNK
  23. TRAZODONE HYDROCHLORIDE [Suspect]
     Active Substance: TRAZODONE HYDROCHLORIDE
     Indication: Product used for unknown indication
     Dosage: UNK
  24. VALPROIC ACID [Suspect]
     Active Substance: VALPROIC ACID
     Indication: Product used for unknown indication
     Dosage: UNK
  25. BOTULINUM TOXIN NOS [Suspect]
     Active Substance: BOTULINUM TOXIN NOS
     Indication: Product used for unknown indication
     Dosage: SINGLE
     Route: 030
     Dates: start: 2018, end: 2018
  26. AMITRIPTYLINE [Suspect]
     Active Substance: AMITRIPTYLINE
     Indication: Product used for unknown indication
     Dates: start: 2017, end: 2018
  27. BOTULINUM TOXIN NOS [Suspect]
     Active Substance: BOTULINUM TOXIN NOS
     Indication: Product used for unknown indication
     Dosage: UNK
     Route: 030
     Dates: start: 2017, end: 2017
  28. ACETAMINOPHEN [Suspect]
     Active Substance: ACETAMINOPHEN
     Indication: Product used for unknown indication
     Dosage: UNK
  29. BOTULINUM TOXIN NOS [Suspect]
     Active Substance: BOTULINUM TOXIN NOS
     Indication: Product used for unknown indication
     Dosage: SINGLE: CYCLICAL
     Route: 030
     Dates: start: 2017, end: 2018
  30. BOTULINUM TOXIN NOS [Suspect]
     Active Substance: BOTULINUM TOXIN NOS
     Indication: Product used for unknown indication
     Dosage: SINGLE: CYCLICAL
     Route: 030
     Dates: start: 2018, end: 2018
  31. AMITRIPTYLINE [Suspect]
     Active Substance: AMITRIPTYLINE
     Indication: Product used for unknown indication
     Dates: start: 2017, end: 2017
  32. VALPROATE [Suspect]
     Active Substance: VALPROIC ACID
     Indication: Product used for unknown indication
     Dosage: UNK UNK, QD
     Route: 030
  33. BOTULINUM TOXIN NOS [Suspect]
     Active Substance: BOTULINUM TOXIN NOS
     Indication: Product used for unknown indication
     Dosage: SINGLE
     Route: 030
     Dates: start: 2017, end: 2017
  34. DOSULEPIN HYDROCHLORIDE [Suspect]
     Active Substance: DOTHIEPIN HYDROCHLORIDE
     Indication: Product used for unknown indication
     Dosage: ORAL LIQUID
     Route: 048
  35. VALPROATE [Suspect]
     Active Substance: VALPROIC ACID
     Indication: Product used for unknown indication
     Dosage: UNK
     Route: 030
  36. ACETAMINOPHEN [Suspect]
     Active Substance: ACETAMINOPHEN
     Indication: Product used for unknown indication
  37. TOPIRAMATE [Suspect]
     Active Substance: TOPIRAMATE
     Indication: Product used for unknown indication
     Dosage: UNK
  38. AMITRIPTYLINE [Suspect]
     Active Substance: AMITRIPTYLINE
     Indication: Product used for unknown indication
     Dosage: UNK, ORAL LIQUID CYCLICAL
     Dates: start: 2017, end: 2018
  39. PROTHIADEN [Suspect]
     Active Substance: DOTHIEPIN HYDROCHLORIDE
     Indication: Product used for unknown indication
     Dosage: UNK

REACTIONS (6)
  - Pain [Unknown]
  - Headache [Unknown]
  - Neck pain [Unknown]
  - Head discomfort [Unknown]
  - Migraine [Unknown]
  - Back pain [Unknown]
